FAERS Safety Report 8205309-1 (Version None)
Quarter: 2012Q1

REPORT INFORMATION
  Report Type: 
  Country: None (occurrence: None)
  Receive Date: 20120313
  Receipt Date: 20120227
  Transmission Date: 20120608
  Serious: Yes (Hospitalization)
  Sender: FDA-Public Use
  Company Number: GB-WATSON-2012-03525

PATIENT
  Age: 46 Year
  Sex: Male

DRUGS (3)
  1. OMEPRAZOLE [Suspect]
     Dosage: ^FOR MANY YEARS^ PRIOR TO HOSPITALIZATION
     Route: 065
  2. OMEPRAZOLE [Suspect]
     Indication: BARRETT'S OESOPHAGUS
     Dosage: RESTARTED DUE TO SYMPTMS OF BARETT'S OESOPHAGUS
     Route: 064
  3. OMEPRAZOLE [Suspect]
     Dosage: THEN WITHDRAWN
     Route: 065

REACTIONS (7)
  - HYPOMAGNESAEMIA [None]
  - HYPOCALCAEMIA [None]
  - BLOOD PARATHYROID HORMONE DECREASED [None]
  - ELECTROCARDIOGRAM QT PROLONGED [None]
  - DIARRHOEA [None]
  - VOMITING [None]
  - TETANY [None]
